FAERS Safety Report 4839644-1 (Version None)
Quarter: 2005Q4

REPORT INFORMATION
  Report Type: 
  Country: None (occurrence: None)
  Receive Date: 20051129
  Receipt Date: 20050502
  Transmission Date: 20060501
  Serious: No
  Sender: FDA-Public Use
  Company Number: US-GLAXOSMITHKLINE-A0556940A

PATIENT
  Age: 58 Year
  Sex: Female

DRUGS (6)
  1. BUPROPION HYDROCHLORIDE [Suspect]
     Indication: DEPRESSION
     Dosage: 100MG PER DAY
     Route: 048
  2. ANTIHYPERTENSIVES [Concomitant]
  3. ACE INHIBITOR [Concomitant]
  4. CLONIDINE [Concomitant]
  5. PREMARIN [Concomitant]
  6. WELLBUTRIN [Concomitant]

REACTIONS (3)
  - HYPERTENSION [None]
  - NIGHTMARE [None]
  - PHARMACEUTICAL PRODUCT COMPLAINT [None]
